FAERS Safety Report 25084194 (Version 2)
Quarter: 2025Q4

REPORT INFORMATION
  Report Type: Report from Study
  Country: CL (occurrence: CL)
  Receive Date: 20250317
  Receipt Date: 20251208
  Transmission Date: 20260118
  Serious: Yes (Hospitalization)
  Sender: JOHNSON AND JOHNSON
  Company Number: CL-JNJFOC-20250328804

PATIENT
  Age: 64 Year
  Sex: Female

DRUGS (1)
  1. SIMPONI [Suspect]
     Active Substance: GOLIMUMAB
     Indication: Rheumatoid arthritis
     Dosage: THERAPY START DATE ALSO REPORTED AS 05-MAY-2022

REACTIONS (3)
  - Renal cancer [Unknown]
  - Cough [Unknown]
  - Visual impairment [Unknown]

NARRATIVE: CASE EVENT DATE: 20250201
